FAERS Safety Report 10447529 (Version 1)
Quarter: 2014Q3

REPORT INFORMATION
  Report Type: Spontaneous
  Country: US (occurrence: US)
  Receive Date: 20140911
  Receipt Date: 20140911
  Transmission Date: 20150326
  Serious: No
  Sender: FDA-Public Use
  Company Number: US-BEH-2014041901

PATIENT
  Sex: Female
  Weight: 72 kg

DRUGS (10)
  1. ZEMAIRA [Suspect]
     Active Substance: .ALPHA.1-PROTEINASE INHIBITOR HUMAN
     Indication: ALPHA-1 ANTI-TRYPSIN DEFICIENCY
     Dosage: 985 MG; 0.08 ML/KG/MIN
     Route: 042
  2. SINGULAIR [Concomitant]
     Active Substance: MONTELUKAST SODIUM
     Route: 048
  3. SODIUM CHLORIDE. [Concomitant]
     Active Substance: SODIUM CHLORIDE
  4. ZOFRAN [Concomitant]
     Active Substance: ONDANSETRON HYDROCHLORIDE
  5. DIPHENHYDRAMINE [Concomitant]
     Active Substance: DIPHENHYDRAMINE
  6. ONDANSETRON [Concomitant]
     Active Substance: ONDANSETRON
  7. ASPIRIN. [Concomitant]
     Active Substance: ASPIRIN
  8. MULTIVITAMINS [Concomitant]
     Active Substance: VITAMINS
     Route: 048
  9. EPIPEN [Concomitant]
     Active Substance: EPINEPHRINE
  10. FLUCONAZOLE. [Concomitant]
     Active Substance: FLUCONAZOLE
     Route: 048

REACTIONS (1)
  - Diarrhoea [Unknown]
